FAERS Safety Report 9056345 (Version 1)
Quarter: 2013Q1

REPORT INFORMATION
  Report Type: Spontaneous
  Country: JP (occurrence: JP)
  Receive Date: 20130204
  Receipt Date: 20130204
  Transmission Date: 20140127
  Serious: No
  Sender: FDA-Public Use
  Company Number: JP-MERCK-1301JPN014350

PATIENT
  Age: 70 Year
  Sex: Female

DRUGS (13)
  1. REFLEX [Suspect]
     Indication: DEPRESSION
     Dosage: 37.5 MG, QD
     Route: 048
     Dates: start: 20120402, end: 20120419
  2. REFLEX [Suspect]
     Indication: STUPOR
  3. PROPOFOL [Suspect]
     Dosage: UNK
     Route: 041
  4. AMOXAPINE [Concomitant]
     Dosage: 150 MG, QD
     Route: 048
  5. AMOXAPINE [Concomitant]
     Dosage: UNK
     Route: 048
  6. QUETIAPINE FUMARATE [Concomitant]
     Dosage: 500 MG, QD
     Route: 048
  7. QUETIAPINE FUMARATE [Concomitant]
     Dosage: UNK
     Route: 048
  8. SULPIRIDE [Concomitant]
     Dosage: 150 MG, QD
  9. SULPIRIDE [Concomitant]
     Dosage: UNK
     Route: 048
  10. RISPERIDONE [Concomitant]
     Dosage: 2 ML, QD
     Route: 065
  11. PALIPERIDONE [Concomitant]
     Dosage: UNK
     Route: 048
  12. PALIPERIDONE [Concomitant]
     Dosage: 9 MG, QD
     Route: 048
  13. PALIPERIDONE [Concomitant]
     Dosage: 6 MG, QD
     Route: 048

REACTIONS (2)
  - Liver disorder [Unknown]
  - Constipation [Unknown]
